FAERS Safety Report 5141105-X (Version None)
Quarter: 2006Q4

REPORT INFORMATION
  Report Type: 
  Country: None (occurrence: None)
  Receive Date: 20061026
  Receipt Date: 20061018
  Transmission Date: 20070319
  Serious: Yes (Disabling)
  Sender: FDA-Public Use
  Company Number: GXKR2006GB06530

PATIENT
  Age: 68 Year
  Sex: Male
  Weight: 66.5 kg

DRUGS (4)
  1. AMOXICILLIN TRIHYDRATE [Suspect]
     Indication: LOWER RESPIRATORY TRACT INFECTION
     Dosage: 500 MG, ORAL
     Route: 048
     Dates: start: 20060627, end: 20060630
  2. GLICLAZIDE (GLICLAZIDE) [Concomitant]
  3. LANTUS [Concomitant]
  4. METFORMIN HCL [Concomitant]

REACTIONS (1)
  - LICHEN PLANUS [None]
